FAERS Safety Report 7017452-3 (Version None)
Quarter: 2010Q3

REPORT INFORMATION
  Report Type: 
  Country: None (occurrence: None)
  Receive Date: 20100928
  Receipt Date: 20100615
  Transmission Date: 20110219
  Serious: Yes (Hospitalization)
  Sender: FDA-Public Use
  Company Number: US-BAYER-201013929NA

PATIENT
  Age: 23 Year
  Sex: Female
  Weight: 73 kg

DRUGS (17)
  1. YAZ [Suspect]
     Indication: PRODUCT USED FOR UNKNOWN INDICATION
     Route: 048
  2. YASMIN [Suspect]
     Indication: ORAL CONTRACEPTION
     Route: 048
     Dates: start: 20030101, end: 20100101
  3. DROSPIRENONE AND ETHINYL ESTRADIOL [Suspect]
     Indication: ORAL CONTRACEPTION
     Route: 048
     Dates: start: 20030101, end: 20100101
  4. AMOXICILLIN [Concomitant]
     Dates: start: 20090203
  5. ALEVE (CAPLET) [Concomitant]
     Dosage: SINCE CHILDHOOD
  6. IBUPROFEN [Concomitant]
     Dosage: SINCE CHILDHOOD
  7. KEPPRA [Concomitant]
     Indication: ANXIETY
     Dates: start: 20090101
  8. ADORRALL [Concomitant]
     Indication: ATTENTION DEFICIT/HYPERACTIVITY DISORDER
     Dates: start: 20020101, end: 20040101
  9. LEXAPRO [Concomitant]
     Indication: DEPRESSION
     Dates: start: 20090101
  10. LEXAPRO [Concomitant]
     Dates: start: 20020101, end: 20050101
  11. LEVETIRACETAM [Concomitant]
  12. NITROFURANTOIN MONO [Concomitant]
  13. SULFAMETHOXAZOLE AND TRIMETHOPRIM [Concomitant]
  14. OXYCODONE [Concomitant]
  15. PROMETHAZINE [Concomitant]
  16. HYDROCODONE BITARTRATE AND ACETAMINOPHEN [Concomitant]
  17. FLUTICASONE PROPIONATE [Concomitant]

REACTIONS (5)
  - ABDOMINAL PAIN UPPER [None]
  - CHOLECYSTITIS [None]
  - CHOLELITHIASIS [None]
  - DYSPEPSIA [None]
  - INJURY [None]
